FAERS Safety Report 5231128-4 (Version None)
Quarter: 2007Q1

REPORT INFORMATION
  Report Type: 
  Country: None (occurrence: None)
  Receive Date: 20070206
  Receipt Date: 20070129
  Transmission Date: 20070707
  Serious: Yes (Hospitalization)
  Sender: FDA-Public Use
  Company Number: US-ROCHE-480417

PATIENT
  Age: 37 Year
  Sex: Female

DRUGS (1)
  1. BONIVA [Suspect]
     Indication: OSTEOPOROSIS
     Route: 048
     Dates: start: 20070115

REACTIONS (2)
  - HAEMATOCHEZIA [None]
  - UPPER GASTROINTESTINAL HAEMORRHAGE [None]
